FAERS Safety Report 6480639-2 (Version None)
Quarter: 2009Q4

REPORT INFORMATION
  Report Type: 
  Country: None (occurrence: None)
  Receive Date: 20091208
  Receipt Date: 20091130
  Transmission Date: 20100525
  Serious: Yes (Other)
  Sender: FDA-Public Use
  Company Number: US-PFIZER INC-2009304495

PATIENT
  Sex: Female
  Weight: 61.688 kg

DRUGS (3)
  1. DETROL LA [Suspect]
     Indication: URINARY INCONTINENCE
     Dosage: 4 MG, 1X/DAY
     Dates: start: 20060101
  2. ESTRACE [Suspect]
     Indication: DRY SKIN
  3. ACTONEL [Concomitant]
     Indication: ASTHMA

REACTIONS (5)
  - CYSTITIS [None]
  - DRUG INEFFECTIVE [None]
  - DRY SKIN [None]
  - INSOMNIA [None]
  - RASH [None]
